FAERS Safety Report 5483538-8 (Version None)
Quarter: 2007Q4

REPORT INFORMATION
  Report Type: 
  Country: None (occurrence: None)
  Receive Date: 20071009
  Receipt Date: 20070927
  Transmission Date: 20080405
  Serious: Yes (Hospitalization)
  Sender: FDA-Public Use
  Company Number: 15886

PATIENT
  Age: 78 Year
  Sex: Male

DRUGS (12)
  1. CYTARABINE [Suspect]
     Indication: ACUTE MYELOID LEUKAEMIA
     Dosage: 20 MG/M2 QD SC
     Route: 058
     Dates: start: 20060802, end: 20061201
  2. PROSCAR [Concomitant]
  3. MICRO-K [Concomitant]
  4. VITAMIN B-12 [Concomitant]
  5. ATENOLOL [Concomitant]
  6. CENTRUM SILVER [Concomitant]
  7. PRED FORTE [Concomitant]
  8. ACULAR [Concomitant]
  9. MIRALAX [Concomitant]
  10. VICODIN [Concomitant]
  11. PROTONIX [Concomitant]
  12. ZOFRAN [Concomitant]

REACTIONS (21)
  - ANAEMIA [None]
  - AORTIC STENOSIS [None]
  - ARTHRALGIA [None]
  - BACTERAEMIA [None]
  - BIOPSY SITE UNSPECIFIED ABNORMAL [None]
  - BLOOD PRESSURE SYSTOLIC INCREASED [None]
  - CONTUSION [None]
  - LEFT VENTRICULAR HYPERTROPHY [None]
  - LIP HAEMORRHAGE [None]
  - LUMBAR SPINAL STENOSIS [None]
  - MITRAL VALVE INCOMPETENCE [None]
  - MOBILITY DECREASED [None]
  - NERVE ROOT COMPRESSION [None]
  - ORAL PAIN [None]
  - PAIN [None]
  - PATHOLOGICAL FRACTURE [None]
  - SOFT TISSUE DISORDER [None]
  - SPINAL COMPRESSION FRACTURE [None]
  - STAPHYLOCOCCAL INFECTION [None]
  - TENDERNESS [None]
  - WHITE BLOOD CELL COUNT DECREASED [None]
